FAERS Safety Report 4639482-9 (Version None)
Quarter: 2005Q2

REPORT INFORMATION
  Report Type: 
  Country: None (occurrence: None)
  Receive Date: 20050418
  Receipt Date: 20050405
  Transmission Date: 20051028
  Serious: Yes (Hospitalization, Other)
  Sender: FDA-Public Use
  Company Number: HQWYE891808MAR05

PATIENT
  Age: 45 Year
  Sex: Male

DRUGS (10)
  1. RAPAMUNE [Suspect]
     Indication: PROPHYLAXIS AGAINST TRANSPLANT REJECTION
     Dosage: 3 MG 1X PER 1 DAY ORAL
     Route: 048
     Dates: start: 20041217
  2. CYCLOSPORINE [Concomitant]
  3. CYCLOSPORINE [Concomitant]
  4. CYCLOSPORINE [Concomitant]
  5. PREDNISONE [Concomitant]
  6. OMEPRAZOLE [Concomitant]
  7. SULFAMETHOXAZOLE + TRIMETHOPRIM [Concomitant]
  8. FUROSEMIDE [Concomitant]
  9. ASPIRIN [Concomitant]
  10. PROPRANOLOL [Concomitant]

REACTIONS (6)
  - ACUTE CORONARY SYNDROME [None]
  - BLOOD CREATININE INCREASED [None]
  - CORONARY ARTERY THROMBOSIS [None]
  - HAEMOGLOBIN DECREASED [None]
  - MYOCARDIAL INFARCTION [None]
  - VENTRICULAR HYPERTROPHY [None]
